FAERS Safety Report 18014408 (Version 1)
Quarter: 2020Q3

REPORT INFORMATION
  Report Type: Spontaneous
  Country: US (occurrence: US)
  Receive Date: 20200713
  Receipt Date: 20200713
  Transmission Date: 20201103
  Serious: Yes (Other)
  Sender: FDA-Public Use
  Company Number: None

PATIENT
  Age: 7 Year
  Sex: Male
  Weight: 22.5 kg

DRUGS (5)
  1. SINGULAIR [Concomitant]
     Active Substance: MONTELUKAST SODIUM
  2. ALLEGRA [Concomitant]
     Active Substance: FEXOFENADINE HYDROCHLORIDE
  3. TRIAMCINOLONE [Concomitant]
     Active Substance: TRIAMCINOLONE
  4. DAILY VITAMIN WITH PROBIOTIC [Concomitant]
  5. BLUMEN CLEAR ADVANCED HAND SANITIZER [Suspect]
     Active Substance: ALCOHOL
     Indication: INFECTION PROPHYLAXIS
     Dosage: ?          QUANTITY:1 DROP(S);?
     Route: 061
     Dates: start: 20200701, end: 20200706

REACTIONS (5)
  - Skin disorder [None]
  - Impaired healing [None]
  - Burning sensation [None]
  - Pain in extremity [None]
  - Skin fissures [None]

NARRATIVE: CASE EVENT DATE: 20200701
